FAERS Safety Report 4452904-1 (Version None)
Quarter: 2004Q3

REPORT INFORMATION
  Report Type: 
  Country: None (occurrence: None)
  Receive Date: 20040916
  Receipt Date: 20040908
  Transmission Date: 20050211
  Serious: Yes (Other)
  Sender: FDA-Public Use
  Company Number: US-JNJFOC-20040903130

PATIENT
  Age: 64 Year
  Sex: Male

DRUGS (10)
  1. TYLENOL (CAPLET) [Suspect]
     Indication: PAIN
     Dosage: 300 MG, 4-5 TIMES IN ONE DAY
     Dates: start: 20040906, end: 20040906
  2. VICODIN [Concomitant]
  3. ASPIRIN TAB [Concomitant]
  4. CLONIDINE [Concomitant]
  5. ZOLOFT [Concomitant]
  6. PREVACID [Concomitant]
  7. BUSPAR [Concomitant]
  8. CARDURA [Concomitant]
  9. BENTYL (DICYCLOVERINE HYDROCLORIDE) [Concomitant]
  10. CARDIZEM [Concomitant]

REACTIONS (2)
  - RASH [None]
  - URTICARIA [None]
